FAERS Safety Report 20432450 (Version 1)
Quarter: 2022Q1

REPORT INFORMATION
  Report Type: Spontaneous
  Country: CH (occurrence: CH)
  Receive Date: 20220204
  Receipt Date: 20220204
  Transmission Date: 20220423
  Serious: Yes (Hospitalization)
  Sender: FDA-Public Use
  Company Number: None

PATIENT
  Age: 60 Year
  Sex: Male

DRUGS (15)
  1. VINCRISTINE [Suspect]
     Active Substance: VINCRISTINE
     Indication: T-cell lymphoma
     Dosage: VINCRISTINE IN NACL 0.9% 2 MG INTRAVENOUS APPLICATION ON FEBRUARY 2ND, 2021; TOTALLY ADDITIONAL INFO
     Route: 042
     Dates: start: 20210202, end: 20210202
  2. ASPIRIN [Suspect]
     Active Substance: ASPIRIN
     Indication: Platelet aggregation inhibition
     Dosage: 100 MILLIGRAM DAILY; ASPIRIN  CARDIO (ACETYLSALICYLIC ACID) 100 MG ORAL INTAKE 1-0-0-0 SINCE UNKNOWN
     Route: 048
     Dates: end: 20210313
  3. ASPIRIN [Suspect]
     Active Substance: ASPIRIN
     Indication: Platelet aggregation inhibition
     Dosage: 100 MILLIGRAM DAILY; ASPIRIN  CARDIO (ACETYLSALICYLIC ACID) 100 MG ORAL INTAKE 1-0-0-0 SINCE UNKNOWN
     Route: 048
     Dates: start: 20210316
  4. PRASUGREL HYDROCHLORIDE [Suspect]
     Active Substance: PRASUGREL HYDROCHLORIDE
     Indication: Platelet aggregation inhibition
     Dosage: 10 MILLIGRAM DAILY; EFIENT  (PRASUGREL) 10 MG ORAL INTAKE 1-0-0-0 SINCE DATE UNKNOWN UNTIL 03/13/202
     Route: 048
     Dates: end: 20210313
  5. PREDNISOLONE [Suspect]
     Active Substance: PREDNISOLONE
     Indication: T-cell lymphoma
     Dosage: 100 MILLIGRAM DAILY; SPIRICORT  (PREDNISOLONE) 100 MG ORAL INTAKE 1X/DAY FROM 02/03/2021-02/06/2021,
     Route: 048
     Dates: start: 20210203, end: 20210206
  6. DOXORUBICIN HYDROCHLORIDE [Suspect]
     Active Substance: DOXORUBICIN HYDROCHLORIDE
     Indication: T-cell lymphoma
     Dosage: ADRIBLASTIN  (DOXORUBICIN) IN NACL 0.9% 75 MG INTRAVENOUS APPLICATION ON FEBRUARY 2ND, 2021; TOTALLY
     Route: 042
     Dates: start: 20210202, end: 20210202
  7. CYCLOPHOSPHAMIDE [Suspect]
     Active Substance: CYCLOPHOSPHAMIDE
     Indication: T-cell lymphoma
     Dosage: ENDOXAN  (CYCLOPHOSPHAMIDE) IN NACL 0.9% 1150 MG INTRAVENOUS APPLICATION ON FEBRUARY 2ND, 2021; TOTA
     Route: 042
     Dates: start: 20210202, end: 20210202
  8. BACTRIM [Concomitant]
     Active Substance: SULFAMETHOXAZOLE\TRIMETHOPRIM
     Dosage: BACTRIM  FORTE (TRIMETHOPRIM / SULFAMETHOXAZOL) 160 / 800 MG 3X/WOCHE ; TIME INTERVAL:, 1 DF, ADDITI
     Route: 048
  9. EZETIMIBE [Concomitant]
     Active Substance: EZETIMIBE
     Dosage: 10 MILLIGRAM DAILY; EZETIMIBE (EXACT PREPARATION UNKNOWN) 10 MG 1-0-0-0, ADDITIONAL INFORMATION: ; R
     Route: 048
  10. LAMIVUDINE [Concomitant]
     Active Substance: LAMIVUDINE
     Dosage: 150 MILLIGRAM DAILY; LAMIVUDINE (EXACT PREPARATION UNKNOWN) 300 MG 0.5-0-0-0, ADDITIONAL INFORMATION
     Route: 048
  11. METFORMIN [Concomitant]
     Active Substance: METFORMIN HYDROCHLORIDE
     Dosage: 2000 MILLIGRAM DAILY; METFORMIN (EXACT PREPARATION UNKNOWN) 1000 MG 1-0-1-0, ADDITIONAL INFORMATION:
     Route: 048
  12. PANTOPRAZOLE SODIUM [Concomitant]
     Active Substance: PANTOPRAZOLE SODIUM
     Dosage: 40 MILLIGRAM DAILY; PANTOPRAZOLE (EXACT PREPARATION UNKNOWN) 40 MG 0-0-1-0, ADDITIONAL INFORMATION:
     Route: 048
  13. ROSUVASTATIN [Concomitant]
     Active Substance: ROSUVASTATIN
     Dosage: 20 MILLIGRAM DAILY; ROSUVASTATIN (EXACT PREPARATION UNKNOWN) 20MG 0-0-1-0, ADDITIONAL INFORMATION: ;
     Route: 048
  14. VALTREX [Concomitant]
     Active Substance: VALACYCLOVIR HYDROCHLORIDE
     Dosage: 1000 MILLIGRAM DAILY; VALTREX  (VALACYCLOVIR) 500 MG 1-0-1-0, ADDITIONAL INFORMATION: ; ROUTE:048CO-
     Route: 048
  15. ALLOPURINOL [Concomitant]
     Active Substance: ALLOPURINOL
     Dosage: 300 MILLIGRAM DAILY; ZYLORIC  (ALLOPURINOL) 300 MG 1-0-0, ADDITIONAL INFORMATION: ; ROUTE:048CO-MEDI
     Route: 048

REACTIONS (5)
  - Gastrointestinal haemorrhage [Recovering/Resolving]
  - Melanaemia [Recovering/Resolving]
  - Anaemia [Recovering/Resolving]
  - Thrombocytopenia [Recovered/Resolved]
  - Asthenia [Recovering/Resolving]

NARRATIVE: CASE EVENT DATE: 20210313
